FAERS Safety Report 11427371 (Version 1)
Quarter: 2015Q3

REPORT INFORMATION
  Report Type: Spontaneous
  Country: US (occurrence: US)
  Receive Date: 20150827
  Receipt Date: 20150827
  Transmission Date: 20151125
  Serious: No
  Sender: FDA-Public Use
  Company Number: US-SA-2015SA080894

PATIENT
  Age: 27 Year
  Sex: Male
  Weight: 68.03 kg

DRUGS (2)
  1. FABRAZYME [Suspect]
     Active Substance: AGALSIDASE BETA
     Indication: FABRY^S DISEASE
     Dosage: C4340Y01 FOR 35 MG VIAL AND E4024403 FOR 5 MG VIAL
     Route: 041
     Dates: start: 2005, end: 20150527
  2. FABRAZYME [Suspect]
     Active Substance: AGALSIDASE BETA
     Indication: FABRY^S DISEASE
     Dosage: C4340Y01 FOR 35 MG VIAL AND E4024403 FOR 5 MG VIAL
     Route: 041
     Dates: start: 2005, end: 20150527

REACTIONS (3)
  - Chills [Recovered/Resolved]
  - Pyrexia [Recovered/Resolved]
  - Infusion related reaction [Recovered/Resolved]

NARRATIVE: CASE EVENT DATE: 20150527
